FAERS Safety Report 9051076 (Version 2)
Quarter: 2013Q2

REPORT INFORMATION
  Report Type: Spontaneous
  Country: US (occurrence: US)
  Receive Date: 20130206
  Receipt Date: 20130412
  Transmission Date: 20140414
  Serious: Yes (Other)
  Sender: FDA-Public Use
  Company Number: US-ELI_LILLY_AND_COMPANY-US201301009105

PATIENT
  Age: 49 Year
  Sex: Female
  Weight: 95.24 kg

DRUGS (5)
  1. HUMULIN REGULAR [Suspect]
     Indication: INSULIN RESISTANT DIABETES
  2. HUMULIN NPH [Suspect]
     Indication: INSULIN RESISTANT DIABETES
     Dosage: 50 U, TID
  3. LANTUS [Concomitant]
     Dosage: 110 U, QD
  4. GEMFIBROZIL [Concomitant]
     Indication: BLOOD CHOLESTEROL INCREASED
     Dosage: 600 MG, BID
  5. GEMFIBROZIL [Concomitant]
     Dosage: 600 MG, QD
     Dates: start: 201212

REACTIONS (7)
  - Eye haemorrhage [Not Recovered/Not Resolved]
  - Renal disorder [Not Recovered/Not Resolved]
  - Diabetic eye disease [Not Recovered/Not Resolved]
  - Blood glucose increased [Not Recovered/Not Resolved]
  - Hepatic enzyme increased [Not Recovered/Not Resolved]
  - Blood cholesterol increased [Not Recovered/Not Resolved]
  - Hepatic steatosis [Unknown]
